FAERS Safety Report 9688741 (Version 1)
Quarter: 2013Q4

REPORT INFORMATION
  Report Type: Spontaneous
  Country: CA (occurrence: CA)
  Receive Date: 20131114
  Receipt Date: 20131114
  Transmission Date: 20140711
  Serious: Yes (Other)
  Sender: FDA-Public Use
  Company Number: CA-GLAXOSMITHKLINE-A1030562A

PATIENT
  Age: 54 Year
  Sex: Female
  Weight: 128 kg

DRUGS (5)
  1. BENLYSTA [Suspect]
     Indication: SYSTEMIC LUPUS ERYTHEMATOSUS
     Dosage: 1270MG SEE DOSAGE TEXT
     Route: 042
     Dates: start: 20130704
  2. SOLUMEDROL [Concomitant]
  3. MACROBID [Concomitant]
  4. AZATHIOPRINE [Concomitant]
  5. PLAQUENIL [Concomitant]

REACTIONS (12)
  - Pruritus [Recovered/Resolved]
  - Nausea [Not Recovered/Not Resolved]
  - Headache [Recovered/Resolved]
  - Vomiting [Not Recovered/Not Resolved]
  - Mouth ulceration [Not Recovered/Not Resolved]
  - Arthralgia [Not Recovered/Not Resolved]
  - Dizziness [Not Recovered/Not Resolved]
  - Asthenia [Not Recovered/Not Resolved]
  - Weight decreased [Unknown]
  - Medical device complication [Not Recovered/Not Resolved]
  - Malaise [Not Recovered/Not Resolved]
  - Central venous catheterisation [Not Recovered/Not Resolved]
